FAERS Safety Report 4613503-1 (Version None)
Quarter: 2005Q1

REPORT INFORMATION
  Report Type: 
  Country: None (occurrence: None)
  Receive Date: 20050321
  Receipt Date: 20050308
  Transmission Date: 20050727
  Serious: Yes (Hospitalization)
  Sender: FDA-Public Use
  Company Number: US-JNJFOC-20040809890

PATIENT
  Sex: Male
  Weight: 121.56 kg

DRUGS (2)
  1. REMICADE [Suspect]
     Route: 042
  2. REMICADE [Suspect]
     Indication: CROHN'S DISEASE
     Route: 042

REACTIONS (4)
  - CYTOMEGALOVIRUS INFECTION [None]
  - FATIGUE [None]
  - PANCYTOPENIA [None]
  - PNEUMONIA [None]
